FAERS Safety Report 18311760 (Version 1)
Quarter: 2020Q3

REPORT INFORMATION
  Report Type: Spontaneous
  Country: DE (occurrence: DE)
  Receive Date: 20200925
  Receipt Date: 20200925
  Transmission Date: 20201103
  Serious: Yes (Life-Threatening, Other)
  Sender: FDA-Public Use
  Company Number: DE-TEVA-2020-DE-1830219

PATIENT
  Age: 52 Year
  Sex: Female
  Weight: 63 kg

DRUGS (9)
  1. ESCITALOPRAM [Concomitant]
     Active Substance: ESCITALOPRAM OXALATE
     Dates: start: 20200626, end: 20200818
  2. RISPERIDON [Suspect]
     Active Substance: RISPERIDONE
     Indication: PSYCHOTIC DISORDER
  3. PROTHIPENDYL 80MG [Concomitant]
     Dates: start: 20200703
  4. CHLORPROTHIXEN [Suspect]
     Active Substance: CHLORPROTHIXENE HYDROCHLORIDE
     Indication: PSYCHOTIC DISORDER
     Dosage: 3 SEPARATED DOSES:UNIT DOSE:90MILLIGRAM
     Route: 048
     Dates: start: 20200716, end: 20200720
  5. CHLORPROTHIXEN [Suspect]
     Active Substance: CHLORPROTHIXENE HYDROCHLORIDE
     Indication: MUTISM
  6. CHLORPROTHIXEN [Suspect]
     Active Substance: CHLORPROTHIXENE HYDROCHLORIDE
     Indication: CATATONIA
  7. QUETIAPIN RETARD 600MG [Concomitant]
     Indication: DEPRESSIVE DELUSION
     Dates: start: 2010, end: 202008
  8. RISPERIDON [Suspect]
     Active Substance: RISPERIDONE
     Indication: CATATONIA
  9. RISPERIDON [Suspect]
     Active Substance: RISPERIDONE
     Indication: MUTISM
     Dosage: 2 SEPARATED DOSES:UNIT DOSE:2MILLIGRAM
     Route: 048
     Dates: start: 20200717, end: 20200720

REACTIONS (3)
  - Neuropathy peripheral [Not Recovered/Not Resolved]
  - Rhabdomyolysis [Recovered/Resolved]
  - Neuroleptic malignant syndrome [Recovered/Resolved]

NARRATIVE: CASE EVENT DATE: 20200720
